FAERS Safety Report 7599725-9 (Version None)
Quarter: 2011Q2

REPORT INFORMATION
  Report Type: 
  Country: None (occurrence: None)
  Receive Date: 20110629
  Receipt Date: 20110621
  Transmission Date: 20111010
  Serious: Yes (Death)
  Sender: FDA-Public Use
  Company Number: 2011-1430

PATIENT
  Age: 75 Year
  Sex: Male

DRUGS (1)
  1. APO-GO AMPOULES (APO-GO) (APOMORPHINE HYDROCHLORIDE) (APOMORPHINE HYDR [Suspect]
     Indication: PRODUCT USED FOR UNKNOWN INDICATION
     Dosage: 4.7 MG PER HOUR (4.7 MG, CONTINUOUS FOR 16 HOURS) , SUBCUTANEOUS
     Route: 058
     Dates: start: 20080306

REACTIONS (1)
  - DEATH [None]
